FAERS Safety Report 11743926 (Version 1)
Quarter: 2015Q4

REPORT INFORMATION
  Report Type: Spontaneous
  Country: US (occurrence: US)
  Receive Date: 20151116
  Receipt Date: 20151116
  Transmission Date: 20160304
  Serious: Yes (Other)
  Sender: FDA-Public Use
  Company Number: US-PFIZER INC-2015385997

PATIENT
  Age: 67 Year
  Sex: Female

DRUGS (4)
  1. MIDAZOLAM [Interacting]
     Active Substance: MIDAZOLAM\MIDAZOLAM HYDROCHLORIDE
     Dosage: 3 MG, UNK
  2. FENTANYL. [Interacting]
     Active Substance: FENTANYL
     Dosage: 50 ?G, UNK
  3. METHOHEXITAL [Interacting]
     Active Substance: METHOHEXITAL
     Dosage: 20 MG, UNK
  4. ATROPINE SULFATE. [Suspect]
     Active Substance: ATROPINE SULFATE
     Dosage: 2 MG, UNK (0.5 MG INCREMENTS)

REACTIONS (2)
  - Drug interaction [Unknown]
  - Delirium [Recovered/Resolved]
